FAERS Safety Report 20866052 (Version 2)
Quarter: 2022Q3

REPORT INFORMATION
  Report Type: Spontaneous
  Country: US (occurrence: US)
  Receive Date: 20220524
  Receipt Date: 20220923
  Transmission Date: 20221026
  Serious: No
  Sender: FDA-Public Use
  Company Number: US-AMGEN-USASP2022082352

PATIENT
  Sex: Male

DRUGS (4)
  1. ARANESP [Suspect]
     Active Substance: DARBEPOETIN ALFA
     Indication: Microcytic anaemia
     Dosage: 300 MICROGRAM, Q2WK
     Route: 065
     Dates: start: 2017
  2. DUPILUMAB [Concomitant]
     Active Substance: DUPILUMAB
     Dosage: UNK
  3. MYCOPHENOLIC ACID [Concomitant]
     Active Substance: MYCOPHENOLIC ACID
     Indication: Prophylaxis against transplant rejection
     Dosage: UNK
  4. IRON [Concomitant]
     Active Substance: IRON
     Dosage: 325 MILLIGRAM, BID

REACTIONS (1)
  - Drug ineffective [Not Recovered/Not Resolved]
